FAERS Safety Report 9456317 (Version 2)
Quarter: 2013Q4

REPORT INFORMATION
  Report Type: Spontaneous
  Country: JP (occurrence: JP)
  Receive Date: 20130813
  Receipt Date: 20131001
  Transmission Date: 20140711
  Serious: Yes (Other)
  Sender: FDA-Public Use
  Company Number: JP-GLAXOSMITHKLINE-B0756066A

PATIENT
  Age: 53 Year
  Sex: Male

DRUGS (3)
  1. LAMICTAL [Suspect]
     Indication: BIPOLAR DISORDER
     Dosage: 25MG PER DAY
     Route: 048
     Dates: start: 20111003, end: 20111014
  2. MILNACIPRAN HYDROCHLORIDE [Suspect]
     Indication: PRODUCT USED FOR UNKNOWN INDICATION
     Dosage: 25MG TWICE PER DAY
     Route: 048
  3. CALMDOWN [Concomitant]
     Dosage: .4MG TWICE PER DAY
     Route: 048

REACTIONS (7)
  - Rash generalised [Recovered/Resolved]
  - Ocular hyperaemia [Recovered/Resolved]
  - Malaise [Recovered/Resolved]
  - Drug level increased [Unknown]
  - Pruritus generalised [Unknown]
  - Pyrexia [Unknown]
  - Drug eruption [Unknown]
